FAERS Safety Report 9538696 (Version 1)
Quarter: 2013Q2

REPORT INFORMATION
  Report Type: Spontaneous
  Country: US (occurrence: None)
  Receive Date: 20130517
  Receipt Date: 20130517
  Transmission Date: 20140414
  Serious: No
  Sender: FDA-Public Use
  Company Number: 1000043876

PATIENT
  Age: 50 Year
  Sex: Female

DRUGS (5)
  1. VIIBRYD (VILAZODONE HYDROCHLORIDE) (10 MILLIGRAM, TABLETS) [Suspect]
     Indication: DEPRESSION
     Dosage: 10MG (10 MG, 1 IN 1 D), ORAL
     Route: 048
     Dates: start: 20130113, end: 20130119
  2. VILAZODONE [Suspect]
     Indication: DEPRESSION
     Dosage: 40MG (40 MG, 1 IN 1 D), ORAL
     Route: 048
     Dates: start: 20130223, end: 20130327
  3. LYRICA (PREGABALIN) (PREGABALIN) [Concomitant]
  4. ALPRAZOLAM (ALPRAZOLAM) (ALPRAZOLAM) [Concomitant]
  5. VTVANSE (LISDEXAMFETAMINE) (LISDEXAMFETAMINE) [Concomitant]

REACTIONS (3)
  - Pruritus [None]
  - Fatigue [None]
  - Therapeutic response unexpected [None]
